FAERS Safety Report 9904732 (Version 3)
Quarter: 2014Q1

REPORT INFORMATION
  Report Type: Spontaneous
  Country: CA (occurrence: CA)
  Receive Date: 20140218
  Receipt Date: 20140319
  Transmission Date: 20141002
  Serious: Yes (Life-Threatening, Hospitalization, Other)
  Sender: FDA-Public Use
  Company Number: CA-UCBSA-113006

PATIENT
  Age: 27 Year
  Sex: Male

DRUGS (3)
  1. KEPPRA [Suspect]
     Indication: EPILEPSY
     Route: 048
     Dates: start: 20121126, end: 20140105
  2. VITAMIN B [Concomitant]
     Route: 048
  3. FLAX SEED OIL [Concomitant]
     Route: 048

REACTIONS (24)
  - Suicide attempt [Not Recovered/Not Resolved]
  - Convulsion [Not Recovered/Not Resolved]
  - Suicidal ideation [Not Recovered/Not Resolved]
  - Hypothermia [Not Recovered/Not Resolved]
  - Dizziness [Unknown]
  - Aggression [Unknown]
  - Agitation [Unknown]
  - Mental disorder [Unknown]
  - Restlessness [Unknown]
  - Panic attack [Unknown]
  - Anger [Unknown]
  - Anxiety [Unknown]
  - Irritability [Unknown]
  - Mood altered [Unknown]
  - Depression [Unknown]
  - Postictal psychosis [Unknown]
  - Abnormal behaviour [Not Recovered/Not Resolved]
  - Muscle spasms [Unknown]
  - Hallucination [Unknown]
  - Dyspnoea [Unknown]
  - Delusion [Unknown]
  - Tongue biting [Unknown]
  - Feeling abnormal [Unknown]
  - Somnolence [Unknown]
